FAERS Safety Report 7258654-0 (Version None)
Quarter: 2011Q1

REPORT INFORMATION
  Report Type: 
  Country: None (occurrence: None)
  Receive Date: 20110129
  Receipt Date: 20100707
  Transmission Date: 20110831
  Serious: No
  Sender: FDA-Public Use
  Company Number: US-ABBOTT-09P-163-0609944-00

PATIENT
  Sex: Male
  Weight: 71.278 kg

DRUGS (4)
  1. LOVAZA [Concomitant]
     Indication: SUPPLEMENTATION THERAPY
  2. HUMIRA [Suspect]
     Indication: PSORIATIC ARTHROPATHY
     Dosage: VERY MONTH OR WHENEVER PSORIASIS WORSEN
     Dates: start: 20090101
  3. HUMIRA [Suspect]
     Indication: PSORIASIS
     Dates: start: 20070101, end: 20091125
  4. MULTIVITAMIN [Concomitant]
     Indication: VITAMIN SUPPLEMENTATION

REACTIONS (8)
  - FATIGUE [None]
  - PSORIATIC ARTHROPATHY [None]
  - PSORIASIS [None]
  - BLOOD PRESSURE INCREASED [None]
  - MUSCULOSKELETAL CHEST PAIN [None]
  - GAIT DISTURBANCE [None]
  - DRUG EFFECT DECREASED [None]
  - FIBROMYALGIA [None]
